FAERS Safety Report 9752299 (Version 3)
Quarter: 2014Q1

REPORT INFORMATION
  Report Type: Report from Study
  Country: AU (occurrence: AU)
  Receive Date: 20131213
  Receipt Date: 20140120
  Transmission Date: 20141002
  Serious: Yes (Life-Threatening, Hospitalization, Disabling)
  Sender: FDA-Public Use
  Company Number: AU-MILLENNIUM PHARMACEUTICALS, INC.-2013JNJ001144

PATIENT
  Sex: 0

DRUGS (11)
  1. VELCADE [Suspect]
     Indication: PLASMA CELL MYELOMA
     Dosage: 2.6 MG, UNK
     Route: 065
     Dates: start: 20120918, end: 20131011
  2. CYCLOPHOSPHAMIDE [Suspect]
     Indication: PLASMA CELL MYELOMA
     Dosage: 600 MG, UNK
     Route: 065
     Dates: start: 20120918, end: 20121106
  3. THALIDOMIDE [Suspect]
     Indication: PLASMA CELL MYELOMA
     Dosage: 100 MG, UNK
     Route: 065
     Dates: start: 20130927, end: 20131119
  4. VITAMIN D                          /00107901/ [Concomitant]
     Indication: OSTEOPOROSIS
     Dosage: UNK
  5. PANADOL OSTEO [Concomitant]
     Indication: PAIN
  6. GRANISETRON [Concomitant]
     Indication: PROPHYLAXIS
     Dosage: UNK
     Dates: start: 20120918
  7. ZOMETA [Concomitant]
     Indication: PROPHYLAXIS
     Dosage: UNK
     Dates: start: 20120907
  8. CELEBREX [Concomitant]
     Indication: PAIN
  9. BONE CAL [Concomitant]
     Indication: OSTEOPOROSIS
  10. HYDROCORTISONE [Concomitant]
     Indication: URTICARIA
     Dosage: UNK
     Dates: start: 20130301
  11. DICLOXACILLIN [Concomitant]
     Indication: ABSCESS

REACTIONS (1)
  - Road traffic accident [Not Recovered/Not Resolved]
